FAERS Safety Report 18801751 (Version 1)
Quarter: 2021Q1

REPORT INFORMATION
  Report Type: Report from Study
  Country: KE (occurrence: KE)
  Receive Date: 20210128
  Receipt Date: 20210128
  Transmission Date: 20210419
  Serious: Yes (Other)
  Sender: FDA-Public Use
  Company Number: KE-SEATTLE GENETICS-2020SGN02539

PATIENT
  Age: 59 Year
  Sex: Male

DRUGS (1)
  1. BRENTUXIMAB VEDOTIN [Suspect]
     Active Substance: BRENTUXIMAB VEDOTIN
     Indication: ANAPLASTIC LARGE CELL LYMPHOMA T- AND NULL-CELL TYPES
     Dosage: 100 MILLIGRAM, Q3WEEKS
     Route: 042
     Dates: start: 20200603

REACTIONS (6)
  - Hepatomegaly [Unknown]
  - Nausea [Unknown]
  - Dyspnoea [Unknown]
  - Bile duct cancer [Unknown]
  - Liver function test abnormal [Unknown]
  - Fatigue [Unknown]
